FAERS Safety Report 9023583 (Version 2)
Quarter: 2013Q1

REPORT INFORMATION
  Report Type: Report from Study
  Country: DK (occurrence: DK)
  Receive Date: 20130121
  Receipt Date: 20130222
  Transmission Date: 20140127
  Serious: Yes (Hospitalization)
  Sender: FDA-Public Use
  Company Number: DK-NOVOPROD-368735

PATIENT
  Sex: 0

DRUGS (4)
  1. LIRAGLUTIDE FLEXPEN [Suspect]
     Indication: TYPE 2 DIABETES MELLITUS
  2. BLINDED NO DRUG GIVEN [Suspect]
     Indication: TYPE 2 DIABETES MELLITUS
  3. BLINDED PLACEBO [Suspect]
     Indication: TYPE 2 DIABETES MELLITUS
  4. BLINDED UNKNOWN [Suspect]
     Indication: TYPE 2 DIABETES MELLITUS

REACTIONS (2)
  - Upper respiratory tract infection [Unknown]
  - Cellulitis [Unknown]
